FAERS Safety Report 15977582 (Version 2)
Quarter: 2019Q1

REPORT INFORMATION
  Report Type: Report from Study
  Country: AR (occurrence: AR)
  Receive Date: 20190218
  Receipt Date: 20190320
  Transmission Date: 20190418
  Serious: Yes (Other)
  Sender: FDA-Public Use
  Company Number: PHHY2019AR027663

PATIENT
  Sex: Female

DRUGS (7)
  1. GALVUS [Suspect]
     Active Substance: VILDAGLIPTIN
     Indication: DIABETES MELLITUS
     Dosage: 2 DF (50X2), QD
     Route: 065
     Dates: start: 20150812
  2. LEVOTHYROXINE. [Concomitant]
     Active Substance: LEVOTHYROXINE
     Indication: PRODUCT USED FOR UNKNOWN INDICATION
     Dosage: 100 UG, UNK
     Route: 065
  3. XARELTO [Concomitant]
     Active Substance: RIVAROXABAN
     Indication: PRODUCT USED FOR UNKNOWN INDICATION
     Dosage: UNK
     Route: 065
  4. METFORMIN [Suspect]
     Active Substance: METFORMIN HYDROCHLORIDE
     Indication: PRODUCT USED FOR UNKNOWN INDICATION
     Dosage: UNK
     Route: 065
     Dates: end: 20150729
  5. AVAPRO [Concomitant]
     Active Substance: IRBESARTAN
     Indication: PRODUCT USED FOR UNKNOWN INDICATION
     Dosage: 150 OT (150X1), UNK
     Route: 065
  6. DOLOFRIX FORTE [Concomitant]
     Indication: PRODUCT USED FOR UNKNOWN INDICATION
     Dosage: 10 MG, UNK
     Route: 065
  7. PLIDAN [Concomitant]
     Indication: PRODUCT USED FOR UNKNOWN INDICATION
     Dosage: UNK
     Route: 065

REACTIONS (8)
  - Memory impairment [Unknown]
  - Fear [Unknown]
  - Cough [Unknown]
  - Diarrhoea [Recovered/Resolved]
  - Malaise [Recovered/Resolved]
  - Blood pressure abnormal [Recovered/Resolved]
  - Depressed level of consciousness [Unknown]
  - Drug intolerance [Unknown]
